FAERS Safety Report 7232687-2 (Version None)
Quarter: 2011Q1

REPORT INFORMATION
  Report Type: 
  Country: None (occurrence: None)
  Receive Date: 20110119
  Receipt Date: 20110114
  Transmission Date: 20110831
  Serious: Yes (Hospitalization, Other)
  Sender: FDA-Public Use
  Company Number: US-BRISTOL-MYERS SQUIBB COMPANY-15391493

PATIENT
  Age: 55 Year
  Sex: Male
  Weight: 61 kg

DRUGS (8)
  1. ZOFRAN [Concomitant]
     Indication: NAUSEA
     Dosage: ONCE EVERY 8 HOURS AS NEEDED
     Route: 048
  2. FLUOROURACIL [Suspect]
     Indication: HEAD AND NECK CANCER
     Dosage: DOSE REDUCED TO 50 PERCENT
     Route: 042
     Dates: start: 20101101
  3. CISPLATIN [Suspect]
     Indication: HEAD AND NECK CANCER
     Route: 042
     Dates: start: 20101101
  4. MAALOX [Concomitant]
  5. CETUXIMAB [Suspect]
     Indication: HEAD AND NECK CANCER
     Route: 042
     Dates: start: 20101108
  6. HYDROCODONE [Concomitant]
     Indication: COUGH
     Dosage: 4 PER DAY AS NEEDED
     Route: 048
  7. EMEND [Concomitant]
     Indication: PREMEDICATION
     Dosage: TAKEN ON DAYS 2 AND 3 OF CHEMO,125 MG TAKEN ON DAY OF CHEMO
     Route: 065
  8. DEXAMETHASONE [Concomitant]
     Indication: PREMEDICATION
     Dosage: 2X/DAY ON DAYS 2-4 POST CHEMO
     Route: 048

REACTIONS (4)
  - ABDOMINAL PAIN UPPER [None]
  - DYSPEPSIA [None]
  - BLOOD CREATININE INCREASED [None]
  - DEHYDRATION [None]
